FAERS Safety Report 9774266 (Version 13)
Quarter: 2014Q3

REPORT INFORMATION
  Report Type: Spontaneous
  Country: US (occurrence: US)
  Receive Date: 20131220
  Receipt Date: 20140709
  Transmission Date: 20150326
  Serious: Yes (Hospitalization, Other)
  Sender: FDA-Public Use
  Company Number: US-JNJFOC-20131208890

PATIENT
  Age: 39 Year
  Sex: Male
  Weight: 99.79 kg

DRUGS (7)
  1. VICKS NYQUIL [Suspect]
     Active Substance: ACETAMINOPHEN\DEXTROMETHORPHAN HYDROBROMIDE\DOXYLAMINE SUCCINATE
     Indication: INFLUENZA LIKE ILLNESS
     Dosage: 1 DOSE PER NIGHT
     Route: 065
     Dates: start: 20101213, end: 20101220
  2. TYLENOL PM [Suspect]
     Active Substance: ACETAMINOPHEN\DIPHENHYDRAMINE
     Indication: PAIN
     Dosage: UNSURE APPROXIMATELY 1 TO 2 PER DAY, TOTAL 7 TO 14 INGESTED
     Route: 065
     Dates: start: 20101213, end: 20101220
  3. PHENERGAN [Concomitant]
     Active Substance: PROMETHAZINE HYDROCHLORIDE
     Indication: PRODUCT USED FOR UNKNOWN INDICATION
     Route: 065
  4. TYLENOL EXTRA STRENGTH [Suspect]
     Active Substance: ACETAMINOPHEN
     Route: 065
  5. TYLENOL EXTRA STRENGTH [Suspect]
     Active Substance: ACETAMINOPHEN
     Indication: INFLUENZA LIKE ILLNESS
     Dosage: USE APPROXIMATELY 4 PER DAY, TOTAL 20 TO 28 INGESTED
     Route: 065
     Dates: start: 20101213, end: 20101220
  6. CODEINE [Concomitant]
     Active Substance: CODEINE
     Indication: PRODUCT USED FOR UNKNOWN INDICATION
     Route: 065
  7. TYLENOL PM [Suspect]
     Active Substance: ACETAMINOPHEN\DIPHENHYDRAMINE
     Indication: SLEEP DISORDER THERAPY
     Dosage: UNSURE APPROXIMATELY 1 TO 2 PER DAY, TOTAL 7 TO 14 INGESTED
     Route: 065
     Dates: start: 20101213, end: 20101220

REACTIONS (11)
  - Acute hepatic failure [Unknown]
  - Acute respiratory failure [Recovering/Resolving]
  - Coagulopathy [Unknown]
  - Renal failure acute [Recovering/Resolving]
  - Pyrexia [Unknown]
  - Oesophagitis [Unknown]
  - Thrombocytopenia [Unknown]
  - Hypernatraemia [Unknown]
  - Hepatic encephalopathy [Recovered/Resolved]
  - Overdose [Unknown]
  - Hypokalaemia [Unknown]

NARRATIVE: CASE EVENT DATE: 201012
